FAERS Safety Report 14984524 (Version 1)
Quarter: 2018Q2

REPORT INFORMATION
  Report Type: Spontaneous
  Country: US (occurrence: US)
  Receive Date: 20180518
  Receipt Date: 20180518
  Transmission Date: 20180711
  Serious: Yes (Life-Threatening, Hospitalization, Disabling, Other)
  Sender: FDA-Public Use
  Company Number: None

PATIENT
  Age: 52 Year
  Sex: Female
  Weight: 65.25 kg

DRUGS (17)
  1. LEVOTHYROXINE. [Concomitant]
     Active Substance: LEVOTHYROXINE
  2. CELECOXIB. [Concomitant]
     Active Substance: CELECOXIB
  3. PROBIOTIC [Concomitant]
     Active Substance: PROBIOTICS NOS
  4. PHENAZOPYRIDINE. [Concomitant]
     Active Substance: PHENAZOPYRIDINE
  5. OXYCODONE-ACETAMINOPHEN [Concomitant]
     Active Substance: ACETAMINOPHEN\OXYCODONE HYDROCHLORIDE
  6. B-12 ENERGY PATCH [Concomitant]
  7. FOLIC ACID. [Concomitant]
     Active Substance: FOLIC ACID
  8. BOTOX [Suspect]
     Active Substance: ONABOTULINUMTOXINA
     Indication: DRUG THERAPY
     Dates: start: 20170522, end: 20170522
  9. DESERT HARVEST ALOE VERA (IC) [Concomitant]
  10. EZOPICLONE [Concomitant]
     Active Substance: ESZOPICLONE
  11. UBIQUINOL [Concomitant]
     Active Substance: UBIQUINOL
  12. VITAMIN D [Concomitant]
     Active Substance: CHOLECALCIFEROL
  13. DULOXETINE HYDROCHLORIDE. [Concomitant]
     Active Substance: DULOXETINE HYDROCHLORIDE
  14. METHOCARBAMOL. [Concomitant]
     Active Substance: METHOCARBAMOL
  15. D-MANNOSE PURE POWDER [Concomitant]
  16. TUMERIC SUPREME [Concomitant]
  17. CBD LOTION [Concomitant]

REACTIONS (8)
  - Coma [None]
  - Impaired driving ability [None]
  - Altered visual depth perception [None]
  - Diplopia [None]
  - Amnesia [None]
  - Mobility decreased [None]
  - Visual impairment [None]
  - Cardiac arrest [None]

NARRATIVE: CASE EVENT DATE: 20170522
